FAERS Safety Report 26056132 (Version 1)
Quarter: 2025Q4

REPORT INFORMATION
  Report Type: Spontaneous
  Country: GB (occurrence: GB)
  Receive Date: 20251118
  Receipt Date: 20251118
  Transmission Date: 20260117
  Serious: Yes (Other)
  Sender: SANDOZ
  Company Number: None

PATIENT
  Age: 50 Year
  Sex: Male

DRUGS (4)
  1. MOMETASONE FUROATE [Suspect]
     Active Substance: MOMETASONE FUROATE
     Indication: Chronic rhinosinusitis with nasal polyps
     Dosage: TWO SPRAYS IN EACH NOSTRIL, ONCE A DAY.
     Route: 065
     Dates: start: 20250821, end: 20250917
  2. Betnesol [Concomitant]
     Indication: Chronic rhinosinusitis with nasal polyps
     Dosage: UNK
     Route: 065
     Dates: start: 20250710, end: 20250820
  3. OMEPRAZOLE [Concomitant]
     Active Substance: OMEPRAZOLE
     Indication: Chronic rhinosinusitis with nasal polyps
     Dosage: UNK
     Route: 065
     Dates: start: 20250710, end: 20250716
  4. PREDNISOLONE [Concomitant]
     Active Substance: PREDNISOLONE
     Indication: Chronic rhinosinusitis with nasal polyps
     Dosage: UNK
     Route: 065
     Dates: start: 20250710, end: 20250716

REACTIONS (3)
  - Wheezing [Unknown]
  - Urticaria [Recovered/Resolved]
  - Dyspnoea [Not Recovered/Not Resolved]

NARRATIVE: CASE EVENT DATE: 20250902
